FAERS Safety Report 9840263 (Version 1)
Quarter: 2013Q4

REPORT INFORMATION
  Report Type: Spontaneous
  Country: US (occurrence: None)
  Receive Date: 20131211
  Receipt Date: 20131211
  Transmission Date: 20140711
  Serious: Yes (Other)
  Sender: FDA-Public Use
  Company Number: ALL1-2012-04447

PATIENT
  Age: 47 Year
  Sex: Female
  Weight: 121.5 kg

DRUGS (1)
  1. FIRAZYR [Suspect]
     Indication: HEREDITARY ANGIOEDEMA
     Dates: start: 20120816

REACTIONS (3)
  - Vomiting [None]
  - Urticaria [None]
  - Nausea [None]
